FAERS Safety Report 4513896-X (Version None)
Quarter: 2004Q4

REPORT INFORMATION
  Report Type: 
  Country: None (occurrence: None)
  Receive Date: 20041130
  Receipt Date: 20040922
  Transmission Date: 20050328
  Serious: Yes (Other)
  Sender: FDA-Public Use
  Company Number: US-GLAXOSMITHKLINE-A0526872A

PATIENT
  Sex: Female

DRUGS (5)
  1. WELLBUTRIN [Suspect]
     Indication: DEPRESSION
     Dosage: 150MG PER DAY
     Route: 048
     Dates: start: 20040911
  2. ABILIFY [Concomitant]
  3. ZYPREXA [Concomitant]
  4. PROZAC [Concomitant]
  5. KLONOPIN [Concomitant]

REACTIONS (4)
  - DIZZINESS [None]
  - FLUSHING [None]
  - HEAD DISCOMFORT [None]
  - MANIA [None]
